FAERS Safety Report 7409335-1 (Version None)
Quarter: 2011Q1

REPORT INFORMATION
  Report Type: 
  Country: None (occurrence: None)
  Receive Date: 20110301
  Receipt Date: 20101005
  Transmission Date: 20110831
  Serious: Yes (Hospitalization)
  Sender: FDA-Public Use
  Company Number: RB-16278-2010

PATIENT
  Age: 33 Year
  Sex: Male

DRUGS (1)
  1. SUBOXONE [Suspect]
     Indication: BACK PAIN
     Dosage: (DOSES VARY WITH RANGES FROM 16-32 MG SUBLINGUAL)
     Route: 060
     Dates: start: 20070101, end: 20100901

REACTIONS (5)
  - OFF LABEL USE [None]
  - PRE-EXISTING CONDITION IMPROVED [None]
  - INFECTION [None]
  - BACK PAIN [None]
  - JOINT DISLOCATION [None]
